FAERS Safety Report 14171213 (Version 1)
Quarter: 2017Q4

REPORT INFORMATION
  Report Type: Spontaneous
  Country: CN (occurrence: CN)
  Receive Date: 20171108
  Receipt Date: 20171108
  Transmission Date: 20180321
  Serious: Yes (Hospitalization)
  Sender: FDA-Public Use
  Company Number: PHHY2015CN124617

PATIENT
  Age: 62 Year
  Sex: Female
  Weight: 65 kg

DRUGS (1)
  1. TEGRETOL [Suspect]
     Active Substance: CARBAMAZEPINE
     Indication: OCCIPITAL NEURALGIA
     Dosage: 200 MG, QD
     Route: 048
     Dates: start: 20150828

REACTIONS (18)
  - Cholecystitis infective [Unknown]
  - Rash erythematous [Unknown]
  - Hypoproteinaemia [Unknown]
  - Skin exfoliation [Unknown]
  - Cerebral infarction [Unknown]
  - Erythema multiforme [Unknown]
  - Hyperthyroidism [Unknown]
  - Chronic gastritis [Unknown]
  - Cholecystitis [Unknown]
  - Anaemia [Unknown]
  - Chills [Unknown]
  - Rash generalised [Unknown]
  - Pyrexia [Unknown]
  - Skin erosion [Unknown]
  - Thyroid mass [Unknown]
  - Hypokalaemia [Unknown]
  - Interstitial lung disease [Unknown]
  - Pruritus [Unknown]

NARRATIVE: CASE EVENT DATE: 20150906
